FAERS Safety Report 10208606 (Version 1)
Quarter: 2014Q2

REPORT INFORMATION
  Report Type: Spontaneous
  Country: IT (occurrence: IT)
  Receive Date: 20140530
  Receipt Date: 20140530
  Transmission Date: 20141212
  Serious: Yes (Other)
  Sender: FDA-Public Use
  Company Number: IT-BRISTOL-MYERS SQUIBB COMPANY-20591517

PATIENT
  Age: 72 Year
  Sex: Male

DRUGS (6)
  1. COUMADIN TABS 5 MG [Suspect]
     Route: 048
     Dates: start: 20070512, end: 20140318
  2. PAROXETINE HCL [Interacting]
     Dosage: PAROXETINE HCL 20 MG TABS
     Dates: start: 20140226, end: 20140318
  3. BENTELAN [Interacting]
     Dosage: 1DF=4MG/2ML INJECTION SOLUTION,05FEB14-10FEB14?11FEB14-16FEB14:1.5MG/2ML INJECTION SOLUTION
     Dates: start: 20140205
  4. LUVION [Concomitant]
     Dosage: TABS
  5. SIVASTIN [Concomitant]
     Dosage: TABS
  6. ZYLORIC [Concomitant]
     Dosage: TABS

REACTIONS (4)
  - Haematemesis [Recovered/Resolved]
  - International normalised ratio increased [Recovered/Resolved]
  - Melaena [Recovered/Resolved]
  - Drug interaction [Recovered/Resolved]
